FAERS Safety Report 4831603-8 (Version None)
Quarter: 2005Q4

REPORT INFORMATION
  Report Type: 
  Country: None (occurrence: None)
  Receive Date: 20051116
  Receipt Date: 20051104
  Transmission Date: 20060501
  Serious: Yes (Hospitalization)
  Sender: FDA-Public Use
  Company Number: 2005151905

PATIENT
  Age: 31 Year
  Sex: Female

DRUGS (2)
  1. GEODON [Suspect]
     Indication: SCHIZOPHRENIA
     Dosage: 240 MG ORAL
     Route: 048
     Dates: start: 20050101, end: 20050101
  2. DIPHENHYDRAMINE HCL [Suspect]
     Indication: OCULOGYRATION
     Dosage: 50 MG INTRAVENOUS
     Route: 042
     Dates: start: 20050101, end: 20050101

REACTIONS (9)
  - DIARRHOEA [None]
  - DRUG INEFFECTIVE [None]
  - DYSKINESIA [None]
  - DYSPNOEA [None]
  - DYSTONIA [None]
  - FALL [None]
  - JOINT LOCK [None]
  - MUSCULOSKELETAL STIFFNESS [None]
  - OCULOGYRATION [None]
